FAERS Safety Report 8126429 (Version 4)
Quarter: 2012Q4

REPORT INFORMATION
  Report Type: Report from Study
  Country: ES (occurrence: ES)
  Receive Date: 20110908
  Receipt Date: 20121105
  Transmission Date: 20130627
  Serious: Yes (Life-Threatening, Hospitalization)
  Sender: FDA-Public Use
  Company Number: ES-CELGENEUS-144-21880-11083182

PATIENT
  Sex: Female
  Weight: 73.2 kg

DRUGS (6)
  1. REVLIMID [Suspect]
     Indication: CLL
     Dosage: 2.5 Milligram
     Route: 048
     Dates: start: 20110704
  2. REVLIMID [Suspect]
     Route: 048
     Dates: start: 20110802
  3. REVLIMID [Suspect]
     Route: 048
     Dates: start: 20120113, end: 20120113
  4. DEXAMETHASONE [Suspect]
     Indication: CLL
     Dosage: 20 Milligram
     Route: 065
     Dates: start: 20110704
  5. DEXAMETHASONE [Suspect]
     Dosage: 20 Milligram
     Route: 065
     Dates: start: 20110802
  6. DEXAMETHASONE [Suspect]
     Dosage: 20 Milligram
     Route: 065
     Dates: start: 20120113, end: 20120113

REACTIONS (1)
  - Pyrexia [Recovered/Resolved]
